FAERS Safety Report 6381254-1 (Version None)
Quarter: 2009Q3

REPORT INFORMATION
  Report Type: 
  Country: None (occurrence: None)
  Receive Date: 20090923
  Receipt Date: 20090911
  Transmission Date: 20100115
  Serious: Yes (Death, Other)
  Sender: FDA-Public Use
  Company Number: 2009-03748

PATIENT
  Sex: Female

DRUGS (2)
  1. VELCADE [Suspect]
     Indication: MULTIPLE MYELOMA
     Dosage: 1 MG/M2, INTRAVENOUS
     Route: 042
     Dates: start: 20090728, end: 20090821
  2. DECADRON SRC [Concomitant]

REACTIONS (5)
  - DIARRHOEA [None]
  - DISEASE PROGRESSION [None]
  - MULTIPLE MYELOMA [None]
  - PLATELET COUNT DECREASED [None]
  - PYREXIA [None]
